FAERS Safety Report 24730880 (Version 2)
Quarter: 2025Q2

REPORT INFORMATION
  Report Type: Spontaneous
  Country: CA (occurrence: CA)
  Receive Date: 20241213
  Receipt Date: 20250409
  Transmission Date: 20250717
  Serious: Yes (Other)
  Sender: ACCORD
  Company Number: None

PATIENT
  Age: 65 Year
  Sex: Female

DRUGS (31)
  1. AMLODIPINE [Suspect]
     Active Substance: AMLODIPINE BESYLATE
     Indication: Product used for unknown indication
     Route: 048
  2. MONTELUKAST [Suspect]
     Active Substance: MONTELUKAST
     Indication: Product used for unknown indication
     Route: 065
  3. ROSUVASTATIN CALCIUM [Suspect]
     Active Substance: ROSUVASTATIN CALCIUM
     Indication: Product used for unknown indication
     Route: 058
  4. ASPIRIN [Suspect]
     Active Substance: ASPIRIN
     Indication: Product used for unknown indication
     Route: 065
  5. BECLOMETHASONE [Suspect]
     Active Substance: BECLOMETHASONE
     Indication: Product used for unknown indication
  6. CALCIUM [Suspect]
     Active Substance: CALCIUM
     Indication: Product used for unknown indication
  7. CIPROFLOXACIN HYDROCHLORIDE [Suspect]
     Active Substance: CIPROFLOXACIN HYDROCHLORIDE
     Indication: Product used for unknown indication
     Route: 065
  8. CLONAZEPAM [Suspect]
     Active Substance: CLONAZEPAM
     Indication: Product used for unknown indication
  9. RISEDRONATE SODIUM [Suspect]
     Active Substance: RISEDRONATE SODIUM
     Indication: Product used for unknown indication
     Route: 065
  10. ERGOCALCIFEROL [Suspect]
     Active Substance: ERGOCALCIFEROL
     Indication: Product used for unknown indication
     Route: 065
  11. FOLIC ACID [Suspect]
     Active Substance: FOLIC ACID
     Indication: Product used for unknown indication
     Route: 065
  12. HYDROMORPHONE HCL [Suspect]
     Active Substance: HYDROMORPHONE HYDROCHLORIDE
     Indication: Product used for unknown indication
  13. MOXIFLOXACIN [Suspect]
     Active Substance: MOXIFLOXACIN
     Indication: Product used for unknown indication
     Route: 065
  14. PREDNISONE [Suspect]
     Active Substance: PREDNISONE
     Indication: Product used for unknown indication
     Route: 065
  15. RITUXIMAB [Suspect]
     Active Substance: RITUXIMAB
     Indication: Product used for unknown indication
     Route: 065
  16. ROPIVACAINE HYDROCHLORIDE [Suspect]
     Active Substance: ROPIVACAINE HYDROCHLORIDE
     Indication: Product used for unknown indication
     Route: 065
  17. THEOPHYLLINE ANHYDROUS [Suspect]
     Active Substance: THEOPHYLLINE ANHYDROUS
     Indication: Product used for unknown indication
     Route: 065
  18. TRAMADOL HYDROCHLORIDE [Suspect]
     Active Substance: TRAMADOL HYDROCHLORIDE
     Indication: Product used for unknown indication
     Route: 065
  19. XOLAIR [Suspect]
     Active Substance: OMALIZUMAB
     Indication: Product used for unknown indication
     Route: 065
  20. ADVAIR HFA [Suspect]
     Active Substance: FLUTICASONE PROPIONATE\SALMETEROL XINAFOATE
     Indication: Product used for unknown indication
  21. FOLATE SODIUM [Suspect]
     Active Substance: FOLATE SODIUM
     Indication: Product used for unknown indication
  22. QVAR [Suspect]
     Active Substance: BECLOMETHASONE DIPROPIONATE
     Indication: Product used for unknown indication
  23. AMINOPHYLLINE [Suspect]
     Active Substance: AMINOPHYLLINE
     Indication: Product used for unknown indication
  24. FLUTICASONE [Suspect]
     Active Substance: FLUTICASONE
     Indication: Product used for unknown indication
  25. OMALIZUMAB [Suspect]
     Active Substance: OMALIZUMAB
     Indication: Product used for unknown indication
  26. SINGULAIR [Suspect]
     Active Substance: MONTELUKAST SODIUM
     Indication: Product used for unknown indication
  27. CIPROFLOXACIN [Suspect]
     Active Substance: CIPROFLOXACIN
     Indication: Product used for unknown indication
  28. MOXIFLOXACIN [Suspect]
     Active Substance: MOXIFLOXACIN
     Indication: Product used for unknown indication
  29. RISEDRONATE SODIUM [Suspect]
     Active Substance: RISEDRONATE SODIUM
     Indication: Product used for unknown indication
  30. ROSUVASTATIN [Suspect]
     Active Substance: ROSUVASTATIN
     Indication: Product used for unknown indication
  31. ROSUVASTATIN CALCIUM [Suspect]
     Active Substance: ROSUVASTATIN CALCIUM
     Indication: Product used for unknown indication
     Route: 048

REACTIONS (7)
  - Vomiting [Recovering/Resolving]
  - Drug hypersensitivity [Recovering/Resolving]
  - Oedema [Recovering/Resolving]
  - Pneumonia [Recovering/Resolving]
  - Dyspnoea [Recovering/Resolving]
  - Asthma [Recovering/Resolving]
  - Wheezing [Recovering/Resolving]
